FAERS Safety Report 17872492 (Version 19)
Quarter: 2022Q3

REPORT INFORMATION
  Report Type: Report from Study
  Country: CN (occurrence: None)
  Receive Date: 20200608
  Receipt Date: 20220708
  Transmission Date: 20221027
  Serious: Yes (Life-Threatening, Hospitalization)
  Sender: FDA-Public Use
  Company Number: CN-ROCHE-2615149

PATIENT
  Age: 67 Year
  Sex: Male
  Weight: 71 kg

DRUGS (97)
  1. POLATUZUMAB VEDOTIN [Suspect]
     Active Substance: POLATUZUMAB VEDOTIN
     Indication: Non-Hodgkin^s lymphoma
     Dosage: DATE OF MOST RECENT DOSE OF POLATUZUMAB VEDOTIN (127.8 MG) PRIOR TO SAE ONSET: 22/MAY/2020
     Route: 042
     Dates: start: 20200522
  2. PLACEBO [Suspect]
     Active Substance: UNSPECIFIED INGREDIENT
     Indication: Non-Hodgkin^s lymphoma
     Dosage: DATE MOST RECENT DOSE PRIOR TO SAE ONSET: 22/MAY/2020
     Route: 042
     Dates: start: 20200522
  3. DOXORUBICIN [Suspect]
     Active Substance: DOXORUBICIN
     Indication: Non-Hodgkin^s lymphoma
     Dosage: MOST RECENT DOSE OF 92 MG DOXORUBICIN PRIOR TO SAE ONSET: 22/MAY/2020  50 MG/M2
     Route: 042
     Dates: start: 20200522
  4. CYCLOPHOSPHAMIDE [Suspect]
     Active Substance: CYCLOPHOSPHAMIDE
     Indication: Non-Hodgkin^s lymphoma
     Dosage: DATE OF MOST RECENT DOSE OF 1380 MG CYCLOPHOSPHAMIDE PRIOR TO SAE ONSET: 22/MAY/2020  750  MG/M2
     Route: 042
     Dates: start: 20200522
  5. PREDNISONE [Suspect]
     Active Substance: PREDNISONE
     Indication: Non-Hodgkin^s lymphoma
     Dosage: ON DAYS 1-5 OF EVERY 21-DAY CYCLE FOR 6 CYCLES?MOST RECENT DOSE OF 100 MG PREDNISONE: 26/MAY/2020
     Route: 042
     Dates: start: 20200522
  6. RITUXIMAB [Suspect]
     Active Substance: RITUXIMAB
     Indication: Non-Hodgkin^s lymphoma
     Dosage: ON 22/MAY/2020, MOST RECENT DOSE OF DOXORUBICIN (690 MG) PRIOR TO SERIOUS ADVERSE EVENT ONSET. 375 M
     Route: 041
     Dates: start: 20200522
  7. PIPERACILLIN SODIUM\TAZOBACTAM SODIUM [Concomitant]
     Active Substance: PIPERACILLIN SODIUM\TAZOBACTAM SODIUM
     Route: 042
     Dates: start: 20200602, end: 20200608
  8. ACETAMINOPHEN [Concomitant]
     Active Substance: ACETAMINOPHEN
  9. CEFACLOR [Concomitant]
     Active Substance: CEFACLOR
  10. SODIUM BICARBONATE [Concomitant]
     Active Substance: SODIUM BICARBONATE
     Route: 042
     Dates: start: 20200522, end: 20200524
  11. SODIUM BICARBONATE [Concomitant]
     Active Substance: SODIUM BICARBONATE
     Route: 042
     Dates: start: 20200523, end: 20200524
  12. SODIUM BICARBONATE [Concomitant]
     Active Substance: SODIUM BICARBONATE
     Route: 042
     Dates: start: 20200710, end: 20200712
  13. SODIUM BICARBONATE [Concomitant]
     Active Substance: SODIUM BICARBONATE
     Route: 042
     Dates: start: 20200731, end: 20200802
  14. SODIUM BICARBONATE [Concomitant]
     Active Substance: SODIUM BICARBONATE
     Route: 042
     Dates: start: 20200821, end: 20200824
  15. SODIUM BICARBONATE [Concomitant]
     Active Substance: SODIUM BICARBONATE
     Route: 042
     Dates: start: 20200914, end: 20200915
  16. SODIUM BICARBONATE [Concomitant]
     Active Substance: SODIUM BICARBONATE
     Route: 042
     Dates: start: 20201008, end: 20201008
  17. TROPISETRON [Concomitant]
     Active Substance: TROPISETRON
     Route: 042
     Dates: start: 20200522, end: 20200525
  18. TROPISETRON [Concomitant]
     Active Substance: TROPISETRON
     Route: 042
     Dates: start: 20200710, end: 20200713
  19. TROPISETRON [Concomitant]
     Active Substance: TROPISETRON
     Route: 042
     Dates: start: 20200731, end: 20200802
  20. TROPISETRON [Concomitant]
     Active Substance: TROPISETRON
     Route: 042
     Dates: start: 20200821, end: 20200824
  21. TROPISETRON [Concomitant]
     Active Substance: TROPISETRON
     Route: 042
     Dates: start: 20200914, end: 20200914
  22. TROPISETRON [Concomitant]
     Active Substance: TROPISETRON
     Route: 042
     Dates: start: 20201009, end: 20201009
  23. OMEPRAZOLE [Concomitant]
     Active Substance: OMEPRAZOLE
     Route: 042
     Dates: start: 20200522, end: 20200525
  24. OMEPRAZOLE [Concomitant]
     Active Substance: OMEPRAZOLE
     Route: 042
     Dates: start: 20200710, end: 20200713
  25. OMEPRAZOLE [Concomitant]
     Active Substance: OMEPRAZOLE
     Route: 042
     Dates: start: 20200731, end: 20200802
  26. OMEPRAZOLE [Concomitant]
     Active Substance: OMEPRAZOLE
     Route: 042
     Dates: start: 20200821, end: 20200824
  27. OMEPRAZOLE [Concomitant]
     Active Substance: OMEPRAZOLE
     Route: 042
     Dates: start: 20200914, end: 20200914
  28. OMEPRAZOLE [Concomitant]
     Active Substance: OMEPRAZOLE
     Route: 042
     Dates: start: 20201009, end: 20201009
  29. SODIUM LACTATE RINGER^S [Concomitant]
     Route: 042
     Dates: start: 20200523, end: 20200524
  30. SODIUM LACTATE RINGER^S [Concomitant]
     Route: 042
     Dates: start: 20200711, end: 20200712
  31. ENTECAVIR [Concomitant]
     Active Substance: ENTECAVIR
     Route: 048
     Dates: start: 20200523, end: 20200525
  32. ENTECAVIR [Concomitant]
     Active Substance: ENTECAVIR
     Route: 048
     Dates: start: 20200526, end: 20200609
  33. ENTECAVIR [Concomitant]
     Active Substance: ENTECAVIR
     Route: 048
     Dates: start: 20200710
  34. ENTECAVIR [Concomitant]
     Active Substance: ENTECAVIR
     Route: 048
     Dates: start: 20200603, end: 20200611
  35. DIPHENHYDRAMINE [Concomitant]
     Active Substance: DIPHENHYDRAMINE
     Route: 030
     Dates: start: 20200522, end: 20200522
  36. DIPHENHYDRAMINE [Concomitant]
     Active Substance: DIPHENHYDRAMINE
     Route: 030
     Dates: start: 20200710, end: 20200710
  37. DIPHENHYDRAMINE [Concomitant]
     Active Substance: DIPHENHYDRAMINE
     Route: 030
     Dates: start: 20200731, end: 20200731
  38. DIPHENHYDRAMINE [Concomitant]
     Active Substance: DIPHENHYDRAMINE
     Route: 030
     Dates: start: 20200821, end: 20200821
  39. DIPHENHYDRAMINE [Concomitant]
     Active Substance: DIPHENHYDRAMINE
     Route: 030
     Dates: start: 20200914, end: 20200914
  40. DIPHENHYDRAMINE [Concomitant]
     Active Substance: DIPHENHYDRAMINE
     Route: 030
     Dates: start: 20201008, end: 20201008
  41. DIPHENHYDRAMINE [Concomitant]
     Active Substance: DIPHENHYDRAMINE
     Route: 030
     Dates: start: 20201029, end: 20201029
  42. DIPHENHYDRAMINE [Concomitant]
     Active Substance: DIPHENHYDRAMINE
     Route: 030
     Dates: start: 20201119, end: 20201119
  43. ACETAMINOPHEN [Concomitant]
     Active Substance: ACETAMINOPHEN
     Route: 048
     Dates: start: 20200522, end: 20200522
  44. ACETAMINOPHEN [Concomitant]
     Active Substance: ACETAMINOPHEN
     Route: 048
     Dates: start: 20200710, end: 20200710
  45. ACETAMINOPHEN [Concomitant]
     Active Substance: ACETAMINOPHEN
     Route: 048
     Dates: start: 20200731, end: 20200731
  46. ACETAMINOPHEN [Concomitant]
     Active Substance: ACETAMINOPHEN
     Route: 048
     Dates: start: 20200821, end: 20200821
  47. ACETAMINOPHEN [Concomitant]
     Active Substance: ACETAMINOPHEN
     Route: 048
     Dates: start: 20200914, end: 20200914
  48. ACETAMINOPHEN [Concomitant]
     Active Substance: ACETAMINOPHEN
     Route: 048
     Dates: start: 20201008, end: 20201008
  49. ACETAMINOPHEN [Concomitant]
     Active Substance: ACETAMINOPHEN
     Route: 048
     Dates: start: 20201029, end: 20201029
  50. ACETAMINOPHEN [Concomitant]
     Active Substance: ACETAMINOPHEN
     Route: 048
     Dates: start: 20201119, end: 20201119
  51. MORPHINE [Concomitant]
     Active Substance: MORPHINE
     Route: 058
     Dates: start: 20200522, end: 20200522
  52. FUROSEMIDE [Concomitant]
     Active Substance: FUROSEMIDE
     Indication: Polyuria
     Route: 042
     Dates: start: 20200522, end: 20200522
  53. FUROSEMIDE [Concomitant]
     Active Substance: FUROSEMIDE
     Route: 042
     Dates: start: 20200710, end: 20200710
  54. FUROSEMIDE [Concomitant]
     Active Substance: FUROSEMIDE
     Route: 042
     Dates: start: 20200731, end: 20200731
  55. FUROSEMIDE [Concomitant]
     Active Substance: FUROSEMIDE
     Route: 042
     Dates: start: 20200821, end: 20200821
  56. FUROSEMIDE [Concomitant]
     Active Substance: FUROSEMIDE
     Route: 042
     Dates: start: 20200914, end: 20200914
  57. FUROSEMIDE [Concomitant]
     Active Substance: FUROSEMIDE
     Route: 042
     Dates: start: 20200603, end: 20200603
  58. NIFEDIPINE [Concomitant]
     Active Substance: NIFEDIPINE
     Route: 060
     Dates: start: 20200522, end: 20200522
  59. PROFENIN [Concomitant]
     Indication: Pain
     Route: 048
     Dates: start: 202003, end: 202005
  60. PROFENIN [Concomitant]
     Route: 048
     Dates: start: 202005, end: 202012
  61. GABAPENTIN [Concomitant]
     Active Substance: GABAPENTIN
     Indication: Pain
     Route: 048
     Dates: start: 20200518, end: 20200602
  62. GABAPENTIN [Concomitant]
     Active Substance: GABAPENTIN
     Route: 048
     Dates: start: 20200602, end: 20200724
  63. PHOSPHOLIPID [Concomitant]
     Active Substance: PHOSPHOLIPID
     Route: 048
     Dates: start: 20200518, end: 20200610
  64. FEBUXOSTAT [Concomitant]
     Active Substance: FEBUXOSTAT
     Route: 048
     Dates: start: 20200522, end: 20200529
  65. GLOBULIN [Concomitant]
     Dates: start: 20200602
  66. TAMIFLU [Concomitant]
     Active Substance: OSELTAMIVIR PHOSPHATE
     Route: 048
  67. VORICONAZOLE [Concomitant]
     Active Substance: VORICONAZOLE
     Route: 048
     Dates: start: 20200602, end: 20200720
  68. SODIUM CHLORIDE [Concomitant]
     Active Substance: SODIUM CHLORIDE
     Route: 048
     Dates: start: 20200611, end: 20200611
  69. METHYLCOBALAMIN [Concomitant]
     Active Substance: METHYLCOBALAMIN
     Indication: Vitamin supplementation
     Route: 048
     Dates: start: 20200612, end: 20200612
  70. PIPERACILLIN SODIUM [Concomitant]
     Active Substance: PIPERACILLIN SODIUM
  71. MOXIFLOXACIN [Concomitant]
     Active Substance: MOXIFLOXACIN
     Route: 042
  72. BICYCLOL [Concomitant]
     Active Substance: BICYCLOL
     Route: 048
     Dates: start: 20200603, end: 20200607
  73. LIDOCAINE [Concomitant]
     Active Substance: LIDOCAINE
     Route: 061
     Dates: start: 20200731, end: 20200731
  74. LIDOCAINE [Concomitant]
     Active Substance: LIDOCAINE
     Route: 061
     Dates: start: 20200821, end: 20200821
  75. LIDOCAINE [Concomitant]
     Active Substance: LIDOCAINE
     Route: 061
     Dates: start: 20200914, end: 20200914
  76. FERROUS SUCCINATE [Concomitant]
     Active Substance: FERROUS SUCCINATE
     Indication: Anaemia
     Route: 048
     Dates: start: 202009, end: 202012
  77. METHYLPREDNISOLONE [Concomitant]
     Active Substance: METHYLPREDNISOLONE
     Route: 042
     Dates: start: 20201029, end: 20201029
  78. METHYLPREDNISOLONE [Concomitant]
     Active Substance: METHYLPREDNISOLONE
     Route: 042
     Dates: start: 20201119, end: 20201119
  79. MOXIFLOXACIN HYDROCHLORIDE [Concomitant]
     Active Substance: MOXIFLOXACIN HYDROCHLORIDE
     Route: 042
     Dates: start: 20200602, end: 20200611
  80. IMMUNE GLOBULIN NOS [Concomitant]
     Active Substance: IMMUNE GLOBULIN NOS
     Route: 042
     Dates: start: 20200604, end: 20200607
  81. ALBUMIN HUMAN [Concomitant]
     Active Substance: ALBUMIN HUMAN
     Route: 042
     Dates: start: 20200604, end: 20200605
  82. MAMMAL LIVER [Concomitant]
     Active Substance: MAMMAL LIVER
     Route: 042
     Dates: start: 20200602, end: 20200611
  83. DOXOFYLLINE [Concomitant]
     Active Substance: DOXOFYLLINE
     Indication: Cough
     Route: 042
     Dates: start: 20200604, end: 20200611
  84. AMBROXOL HYDROCHLORIDE [Concomitant]
     Active Substance: AMBROXOL HYDROCHLORIDE
     Route: 042
     Dates: start: 20200604, end: 20200611
  85. COMPOUND DANSHEN DRIPPING PILLS [Concomitant]
     Indication: Chest discomfort
     Dosage: 10 GRAIN
     Route: 048
     Dates: start: 20200603, end: 20200603
  86. POTASSIUM CHLORIDE [Concomitant]
     Active Substance: POTASSIUM CHLORIDE
     Route: 048
     Dates: start: 20200607, end: 20200609
  87. ETIMICIN SULFATE [Concomitant]
     Active Substance: ETIMICIN SULFATE
     Route: 042
     Dates: start: 20200620, end: 20200706
  88. URSODIOL [Concomitant]
     Active Substance: URSODIOL
     Route: 048
     Dates: start: 20200621, end: 20200706
  89. CEFAMANDOLE NAFATE [Concomitant]
     Active Substance: CEFAMANDOLE NAFATE
     Route: 042
     Dates: start: 20200624, end: 20200627
  90. CEFAMANDOLE NAFATE [Concomitant]
     Active Substance: CEFAMANDOLE NAFATE
     Route: 042
     Dates: start: 20200702, end: 20200703
  91. CEFONICID SODIUM [Concomitant]
     Active Substance: CEFONICID SODIUM
     Route: 042
     Dates: start: 20200629, end: 20200629
  92. CEFONICID SODIUM [Concomitant]
     Active Substance: CEFONICID SODIUM
     Route: 042
     Dates: start: 20200702, end: 20200702
  93. HYDROXYETHYL STARCH 40 SODIUM CHLORIDE [Concomitant]
     Route: 042
     Dates: start: 20200602, end: 20200603
  94. COMPOUND PARACETAMOL [Concomitant]
     Indication: Pain
     Route: 048
     Dates: start: 20200604, end: 20200604
  95. COMPOUND PARACETAMOL [Concomitant]
     Dosage: 1 OTHER
     Route: 048
     Dates: start: 20200606, end: 20200606
  96. OSELTAMIVIR [Concomitant]
     Active Substance: OSELTAMIVIR
     Route: 048
     Dates: start: 20200603, end: 20200610
  97. XUE SU SHENG KE LI [Concomitant]
     Route: 048
     Dates: start: 20200629, end: 202007

REACTIONS (4)
  - Hypotension [Recovered/Resolved]
  - Platelet count decreased [Recovered/Resolved]
  - Lymphocyte count decreased [Recovered/Resolved]
  - Pneumonia [Recovering/Resolving]

NARRATIVE: CASE EVENT DATE: 20200602
